FAERS Safety Report 10048444 (Version 1)
Quarter: 2014Q1

REPORT INFORMATION
  Report Type: Spontaneous
  Country: US (occurrence: None)
  Receive Date: 20140327
  Receipt Date: 20140327
  Transmission Date: 20141002
  Serious: Yes (Other)
  Sender: FDA-Public Use
  Company Number: 2014-US-003172

PATIENT
  Age: 44 Year
  Sex: Female
  Weight: 56.7 kg

DRUGS (6)
  1. XYREM [Suspect]
     Indication: NARCOLEPSY
     Route: 048
     Dates: start: 200802
  2. ZOCOR (SIMVASTATIN) [Concomitant]
  3. ADDERALL (AMPHETAMINE AND DEXTROAMPHETAMINE [Concomitant]
  4. SERTRALINE (SERTRALINE HYDROCHLORIDE) [Concomitant]
  5. ERRIN (NORETHISTERONE) [Concomitant]
  6. VITAMIN D (COLECALCIFEROL) [Concomitant]

REACTIONS (11)
  - Head injury [None]
  - Suture insertion [None]
  - Fall [None]
  - Cataplexy [None]
  - Contusion [None]
  - Upper respiratory tract infection [None]
  - Sinusitis [None]
  - Immune system disorder [None]
  - Feeling abnormal [None]
  - Fatigue [None]
  - Somnolence [None]
